FAERS Safety Report 14056979 (Version 1)
Quarter: 2017Q4

REPORT INFORMATION
  Report Type: Spontaneous
  Country: US (occurrence: US)
  Receive Date: 20171006
  Receipt Date: 20171006
  Transmission Date: 20180321
  Serious: No
  Sender: FDA-Public Use
  Company Number: US-GE HEALTHCARE LIFE SCIENCES-2017CSU003071

PATIENT
  Sex: Male
  Weight: 99.77 kg

DRUGS (1)
  1. ADREVIEW [Suspect]
     Active Substance: IOBENGUANE I-123
     Indication: BENIGN NEOPLASM OF ADRENAL GLAND
     Dosage: 429 MBQ (11.6MCI), SINGLE
     Route: 042
     Dates: start: 20170926, end: 20170926

REACTIONS (1)
  - Fatigue [Not Recovered/Not Resolved]
